FAERS Safety Report 9503554 (Version 1)
Quarter: 2013Q1

REPORT INFORMATION
  Report Type: Spontaneous
  Country: US (occurrence: None)
  Receive Date: 20130130
  Receipt Date: 20130130
  Transmission Date: 20140127
  Serious: Yes (Other)
  Sender: FDA-Public Use
  Company Number: US201212000986

PATIENT
  Sex: Female

DRUGS (13)
  1. BYETTA (EXENATIDE) PEN, DISPOSABLE [Suspect]
     Indication: TYPE 2 DIABETES MELLITUS
     Route: 058
  2. HUMALOG (INSULIN LISPRO) [Concomitant]
  3. SYNTHROID (LEVOTHYROXINE SODIUM) [Concomitant]
  4. KLONOPIN (CLONAZEPAM) (TABLETS) [Concomitant]
  5. MECLIZINE (MECLOZINE) [Concomitant]
  6. IMITREX (SUMATRIPTAN SUCCINATE) [Concomitant]
  7. METOPROLOL (METOPROLOL) [Concomitant]
  8. ZANTAC (RANITIDINE HYDROCHLORIDE) [Concomitant]
  9. COUMADINE (WARFARIN SODIUM) [Concomitant]
  10. FLONASE (FLUTICASONE PROPIONATE) [Concomitant]
  11. LITHIUM (LITHIUM) [Concomitant]
  12. OXYCODONE (OXYCODONE) [Concomitant]
  13. BYDUREON [Suspect]
     Indication: TYPE 2 DIABETES MELLITUS
     Route: 058

REACTIONS (5)
  - Vomiting projectile [None]
  - Dehydration [None]
  - Nausea [None]
  - Vomiting [None]
  - Off label use [None]
